FAERS Safety Report 21964441 (Version 1)
Quarter: 2023Q1

REPORT INFORMATION
  Report Type: Spontaneous
  Country: DE (occurrence: DE)
  Receive Date: 20230207
  Receipt Date: 20230207
  Transmission Date: 20230417
  Serious: Yes (Hospitalization)
  Sender: FDA-Public Use
  Company Number: DE-ADRED-06081-01

PATIENT
  Age: 90 Year
  Sex: Female

DRUGS (7)
  1. APIXABAN [Suspect]
     Active Substance: APIXABAN
     Indication: Product used for unknown indication
     Dosage: 5 MG, 1-0-1-0
     Route: 065
  2. TORSEMIDE [Suspect]
     Active Substance: TORSEMIDE
     Indication: Product used for unknown indication
     Dosage: 10 MG, 0.5-0-0-0
     Route: 065
  3. PANTOPRAZOLE SODIUM [Concomitant]
     Active Substance: PANTOPRAZOLE SODIUM
     Dosage: 40 MG, 1-0-0-0
     Route: 065
  4. METOPROLOL [Concomitant]
     Active Substance: METOPROLOL
     Dosage: 23.75 MG, 1-0-1-0
     Route: 065
  5. CANDESARTAN [Concomitant]
     Active Substance: CANDESARTAN
     Dosage: 8 MG, 1-0-1-0
     Route: 065
  6. ASPIRIN [Concomitant]
     Active Substance: ASPIRIN
     Dosage: 100 MG, 0-1-0-0
     Route: 065
  7. SIMVASTATIN [Concomitant]
     Active Substance: SIMVASTATIN
     Dosage: 20 MG, 0-0-1.5-0
     Route: 065

REACTIONS (7)
  - Dyspnoea exertional [Unknown]
  - Oedema peripheral [Unknown]
  - Anuria [Unknown]
  - Haematochezia [Unknown]
  - Anaemia [Unknown]
  - Product monitoring error [Unknown]
  - Product prescribing error [Unknown]
